FAERS Safety Report 9450319 (Version 4)
Quarter: 2015Q1

REPORT INFORMATION
  Report Type: Report from Study
  Country: CA (occurrence: CA)
  Receive Date: 20130809
  Receipt Date: 20150323
  Transmission Date: 20150721
  Serious: Yes (Life-Threatening, Hospitalization, Disabling)
  Sender: FDA-Public Use
  Company Number: CA-JNJFOC-20130804084

PATIENT
  Age: 81 Year
  Sex: Female
  Weight: 74 kg

DRUGS (7)
  1. LANTUS [Concomitant]
     Active Substance: INSULIN GLARGINE
     Route: 065
  2. RIVAROXABAN [Suspect]
     Active Substance: RIVAROXABAN
     Indication: CEREBROVASCULAR ACCIDENT PROPHYLAXIS
     Route: 048
     Dates: start: 20130625
  3. NOVORAPID [Concomitant]
     Active Substance: INSULIN ASPART
     Route: 065
  4. RIVAROXABAN [Suspect]
     Active Substance: RIVAROXABAN
     Indication: THROMBOSIS PROPHYLAXIS
     Route: 048
     Dates: start: 20130730, end: 20130803
  5. ASA [Suspect]
     Active Substance: ASPIRIN
     Indication: PRODUCT USED FOR UNKNOWN INDICATION
     Route: 065
     Dates: start: 2013, end: 20130625
  6. RIVAROXABAN [Suspect]
     Active Substance: RIVAROXABAN
     Indication: THROMBOSIS PROPHYLAXIS
     Route: 048
     Dates: start: 20130625
  7. RIVAROXABAN [Suspect]
     Active Substance: RIVAROXABAN
     Indication: CEREBROVASCULAR ACCIDENT PROPHYLAXIS
     Route: 048
     Dates: start: 20130730, end: 20130803

REACTIONS (4)
  - Intestinal obstruction [Recovered/Resolved]
  - Abdominal pain [Recovered/Resolved]
  - Vaginal haemorrhage [Recovered/Resolved]
  - Rectal haemorrhage [Recovered/Resolved]

NARRATIVE: CASE EVENT DATE: 20130729
